FAERS Safety Report 22108191 (Version 4)
Quarter: 2023Q2

REPORT INFORMATION
  Report Type: Report from Study
  Country: TR (occurrence: TR)
  Receive Date: 20230317
  Receipt Date: 20230411
  Transmission Date: 20230721
  Serious: Yes (Death, Hospitalization, Other)
  Sender: FDA-Public Use
  Company Number: TR-002147023-NVSC2023TR060381

PATIENT
  Age: 82 Year
  Sex: Male
  Weight: 70 kg

DRUGS (4)
  1. TABRECTA [Suspect]
     Active Substance: CAPMATINIB
     Indication: Non-small cell lung cancer
     Dosage: 800 MG
     Route: 048
     Dates: start: 20230210, end: 20230228
  2. TABRECTA [Suspect]
     Active Substance: CAPMATINIB
     Dosage: 200 MG
     Route: 048
     Dates: start: 20230301
  3. TABRECTA [Suspect]
     Active Substance: CAPMATINIB
     Dosage: 800 MG
     Route: 048
     Dates: end: 20230309
  4. TABRECTA [Suspect]
     Active Substance: CAPMATINIB
     Dosage: 800 MG
     Route: 048
     Dates: end: 20230321

REACTIONS (11)
  - Cardiac arrest [Fatal]
  - Pneumonia [Recovered/Resolved with Sequelae]
  - Sepsis [Recovered/Resolved]
  - Acute kidney injury [Unknown]
  - Infection [Unknown]
  - Confusional state [Unknown]
  - Urine output decreased [Unknown]
  - Tachycardia [Unknown]
  - Hypotension [Unknown]
  - Pyrexia [Unknown]
  - Dyspnoea [Unknown]

NARRATIVE: CASE EVENT DATE: 20230210
